FAERS Safety Report 21333680 (Version 2)
Quarter: 2022Q4

REPORT INFORMATION
  Report Type: Spontaneous
  Country: US (occurrence: US)
  Receive Date: 20220914
  Receipt Date: 20221007
  Transmission Date: 20230113
  Serious: Yes (Death, Other)
  Sender: FDA-Public Use
  Company Number: US-009507513-2209USA002928

PATIENT
  Age: 81 Year
  Sex: Female

DRUGS (1)
  1. KEYTRUDA [Suspect]
     Active Substance: PEMBROLIZUMAB
     Indication: Bladder cancer
     Dosage: 200 MILLIGRAM, EVERY 3 WEEKS; ROUTE: INFUSION
     Dates: start: 20211014

REACTIONS (1)
  - Death [Fatal]

NARRATIVE: CASE EVENT DATE: 20220423
